FAERS Safety Report 9168365 (Version 1)
Quarter: 2013Q1

REPORT INFORMATION
  Report Type: Spontaneous
  Country: US (occurrence: US)
  Receive Date: 20130318
  Receipt Date: 20130318
  Transmission Date: 20140127
  Serious: No
  Sender: FDA-Public Use
  Company Number: US-PFIZER INC-2013088261

PATIENT
  Age: 86 Year
  Sex: Female
  Weight: 54 kg

DRUGS (2)
  1. LYRICA [Suspect]
     Indication: NEURALGIA
     Dosage: UNK
     Route: 048
     Dates: start: 20130312
  2. SYNTHROID [Concomitant]
     Indication: THYROID DISORDER
     Dosage: UNK

REACTIONS (3)
  - Confusional state [Not Recovered/Not Resolved]
  - Feeling abnormal [Not Recovered/Not Resolved]
  - Hypoaesthesia [Not Recovered/Not Resolved]
